FAERS Safety Report 9518370 (Version 1)
Quarter: 2013Q3

REPORT INFORMATION
  Report Type: Spontaneous
  Country: US (occurrence: None)
  Receive Date: 20130910
  Receipt Date: 20130910
  Transmission Date: 20140515
  Serious: Yes (Disabling)
  Sender: FDA-Public Use
  Company Number: None

PATIENT
  Age: 74 Year
  Sex: Female

DRUGS (1)
  1. OPANA [Suspect]
     Indication: PAIN
     Route: 048
     Dates: start: 20130905, end: 20130907

REACTIONS (17)
  - Nausea [None]
  - Vomiting [None]
  - Constipation [None]
  - Amnesia [None]
  - Pruritus [None]
  - Somnolence [None]
  - Dizziness [None]
  - Visual impairment [None]
  - Erythema of eyelid [None]
  - Erythema [None]
  - Swelling face [None]
  - Mydriasis [None]
  - Tongue coated [None]
  - Hypopnoea [None]
  - Dysgeusia [None]
  - Tongue dry [None]
  - Glossodynia [None]
